FAERS Safety Report 6227231-2 (Version None)
Quarter: 2009Q2

REPORT INFORMATION
  Report Type: 
  Country: None (occurrence: None)
  Receive Date: 20090612
  Receipt Date: 20090529
  Transmission Date: 20091009
  Serious: No
  Sender: FDA-Public Use
  Company Number: US-ABBOTT-09P-163-0576821-00

PATIENT
  Sex: Female

DRUGS (1)
  1. HUMIRA [Suspect]
     Indication: RHEUMATOID ARTHRITIS
     Dates: start: 20090501

REACTIONS (11)
  - APPETITE DISORDER [None]
  - ARTHRALGIA [None]
  - ASTHENIA [None]
  - BACK PAIN [None]
  - CHILLS [None]
  - DRUG INEFFECTIVE [None]
  - HEADACHE [None]
  - JOINT SWELLING [None]
  - MYALGIA [None]
  - OROPHARYNGEAL PAIN [None]
  - PYREXIA [None]
